FAERS Safety Report 10852085 (Version 1)
Quarter: 2015Q1

REPORT INFORMATION
  Report Type: Spontaneous
  Country: US (occurrence: US)
  Receive Date: 20150222
  Receipt Date: 20150222
  Transmission Date: 20150721
  Serious: No
  Sender: FDA-Public Use
  Company Number: US-ALLERGAN-1421211US

PATIENT
  Age: 39 Year
  Sex: Female

DRUGS (2)
  1. ANTIVERT                           /00007101/ [Concomitant]
     Dosage: 25 MG, UNK
     Route: 048
     Dates: start: 20140926
  2. BOTOX [Suspect]
     Active Substance: ONABOTULINUMTOXINA
     Indication: MIGRAINE
     Dosage: 155 UNITS, SINGLE
     Route: 030
     Dates: start: 20140924, end: 20140924

REACTIONS (1)
  - Asthenia [Unknown]

NARRATIVE: CASE EVENT DATE: 20140926
